FAERS Safety Report 13693231 (Version 1)
Quarter: 2017Q2

REPORT INFORMATION
  Report Type: Spontaneous
  Country: US (occurrence: US)
  Receive Date: 20170626
  Receipt Date: 20170626
  Transmission Date: 20170830
  Serious: Yes (Other)
  Sender: FDA-Public Use
  Company Number: None

PATIENT
  Age: 26 Year
  Sex: Female
  Weight: 74.25 kg

DRUGS (9)
  1. ZYRTTEC [Concomitant]
  2. SIMETHICONE (DIMETHICONE) [Concomitant]
     Active Substance: DIMETHICONE
  3. ALBUTEROL. [Concomitant]
     Active Substance: ALBUTEROL
  4. ALEVE [Concomitant]
     Active Substance: NAPROXEN SODIUM
  5. CIPRO [Suspect]
     Active Substance: CIPROFLOXACIN HYDROCHLORIDE
     Indication: KIDNEY INFECTION
     Route: 048
  6. EPIPEN [Concomitant]
     Active Substance: EPINEPHRINE
  7. FOMATODINE [Concomitant]
  8. MOTRIN [Concomitant]
     Active Substance: IBUPROFEN
  9. CIPRO [Suspect]
     Active Substance: CIPROFLOXACIN HYDROCHLORIDE
     Indication: URINARY TRACT INFECTION
     Route: 048

REACTIONS (8)
  - Neuropathy peripheral [None]
  - Weight increased [None]
  - Myalgia [None]
  - Diarrhoea [None]
  - Haemorrhoids [None]
  - Arthralgia [None]
  - Suicidal ideation [None]
  - Headache [None]

NARRATIVE: CASE EVENT DATE: 20110601
